FAERS Safety Report 10014785 (Version 2)
Quarter: 2014Q1

REPORT INFORMATION
  Report Type: Spontaneous
  Country: JP (occurrence: JP)
  Receive Date: 20140317
  Receipt Date: 20140317
  Transmission Date: 20141002
  Serious: Yes (Hospitalization)
  Sender: FDA-Public Use
  Company Number: PHJP2014JP000533

PATIENT
  Age: 72 Year
  Sex: Female

DRUGS (3)
  1. TEGRETOL TAB 200MG [Suspect]
     Indication: STATUS EPILEPTICUS
     Dosage: 100 MG, BID
     Route: 048
     Dates: start: 20140124, end: 20140203
  2. LAMICTAL [Concomitant]
     Dosage: UNK UKN, UNK
     Route: 048
     Dates: start: 20140124
  3. E KEPPRA [Concomitant]
     Dosage: UNK UKN, UNK
     Route: 048
     Dates: start: 20140124

REACTIONS (1)
  - White blood cell count decreased [Recovered/Resolved]
